FAERS Safety Report 25231367 (Version 2)
Quarter: 2025Q2

REPORT INFORMATION
  Report Type: Spontaneous
  Country: DE (occurrence: DE)
  Receive Date: 20250423
  Receipt Date: 20250530
  Transmission Date: 20250716
  Serious: Yes (Hospitalization, Other)
  Sender: SANDOZ
  Company Number: DE-SANDOZ-SDZ2025DE024883

PATIENT
  Age: 72 Year
  Sex: Male

DRUGS (1)
  1. LEUPROLIDE ACETATE [Suspect]
     Active Substance: LEUPROLIDE ACETATE
     Indication: Prostatectomy
     Dosage: UNK, Q3MO (3 MONTHS INJECTION 5 MG)
     Route: 065
     Dates: start: 20241009, end: 20250410

REACTIONS (17)
  - Prostate cancer [Unknown]
  - Bladder neck obstruction [Unknown]
  - Hypertension [Unknown]
  - Febrile infection [Unknown]
  - Erectile dysfunction [Not Recovered/Not Resolved]
  - Tachycardia [Unknown]
  - Ill-defined disorder [Unknown]
  - Labile blood pressure [Unknown]
  - Pollakiuria [Not Recovered/Not Resolved]
  - Hot flush [Not Recovered/Not Resolved]
  - Loss of libido [Not Recovered/Not Resolved]
  - Incontinence [Not Recovered/Not Resolved]
  - Alopecia [Unknown]
  - Dry skin [Unknown]
  - Gynaecomastia [Unknown]
  - Sluggishness [Unknown]
  - Hyperhidrosis [Unknown]

NARRATIVE: CASE EVENT DATE: 20241009
